FAERS Safety Report 6730566-8 (Version None)
Quarter: 2010Q2

REPORT INFORMATION
  Report Type: 
  Country: None (occurrence: None)
  Receive Date: 20100514
  Receipt Date: 20100507
  Transmission Date: 20101027
  Serious: Yes (Other)
  Sender: FDA-Public Use
  Company Number: DSM-2010-00682

PATIENT
  Age: 47 Year
  Sex: Male

DRUGS (4)
  1. OLMETEC (OLMESARTAN MEDOXOMIL) (TABLET) (OLMESARTAN MEDOXOMIL) [Suspect]
     Indication: HYPERTENSION
     Dosage: 10 MG, ORAL, 5 MG, ORAL
     Route: 048
  2. PLAVIX (CLOPIDOGREL (CLOPIDOGREL) [Concomitant]
  3. KARDEGIC (ACETYLSALICYLIC ACID) (ACETYLSALCYLIC ACID) [Concomitant]
  4. BETABLOCKERS (BETA BLOCKING AGENTS) [Concomitant]

REACTIONS (5)
  - BRONCHITIS CHRONIC [None]
  - GENERAL PHYSICAL HEALTH DETERIORATION [None]
  - HYPOTENSION [None]
  - RENAL FAILURE [None]
  - RESPIRATORY DISORDER [None]
